FAERS Safety Report 10381226 (Version 1)
Quarter: 2014Q1

REPORT INFORMATION
  Report Type: Spontaneous
  Country: US (occurrence: None)
  Receive Date: 20140306
  Receipt Date: 20140306
  Transmission Date: 20141002
  Serious: Yes (Hospitalization)
  Sender: FDA-Public Use
  Company Number: 163-21880-13013777

PATIENT
  Age: 57 Year
  Sex: Female
  Weight: 58.06 kg

DRUGS (5)
  1. REVLIMID (LENALIDOMIDE) (15 MILLIGRAM, CAPSULES) [Suspect]
     Indication: PLASMA CELL MYELOMA
     Route: 048
     Dates: start: 201009
  2. AREDIA (PAMIDRONATE DISODIUM) [Concomitant]
  3. LOW DOSE ASPIRIN (ACETYLSALICYLIC ACID) [Concomitant]
  4. GABAPENTIN (GABAPENTIN) [Concomitant]
  5. MVI (MVI) [Concomitant]

REACTIONS (5)
  - Influenza [None]
  - Neutropenia [None]
  - Arthralgia [None]
  - Muscle spasms [None]
  - Back pain [None]
